FAERS Safety Report 7776900-1 (Version None)
Quarter: 2011Q3

REPORT INFORMATION
  Report Type: 
  Country: None (occurrence: None)
  Receive Date: 20110926
  Receipt Date: 20110909
  Transmission Date: 20111222
  Serious: Yes (Other)
  Sender: FDA-Public Use
  Company Number: US-BAYER-2011-053018

PATIENT
  Age: 32 Year
  Sex: Female
  Weight: 86.621 kg

DRUGS (2)
  1. WELLBUTRIN [Concomitant]
  2. YASMIN [Suspect]
     Indication: ORAL CONTRACEPTION
     Dosage: UNK
     Dates: start: 20030301, end: 20070501

REACTIONS (9)
  - INJURY [None]
  - BILIARY DYSKINESIA [None]
  - EMOTIONAL DISTRESS [None]
  - ASTHENIA [None]
  - DEPRESSION [None]
  - TRANSIENT ISCHAEMIC ATTACK [None]
  - CHOLECYSTECTOMY [None]
  - CHEST PAIN [None]
  - HYPOAESTHESIA [None]
